FAERS Safety Report 23841741 (Version 1)
Quarter: 2024Q2

REPORT INFORMATION
  Report Type: Spontaneous
  Country: US (occurrence: US)
  Receive Date: 20240510
  Receipt Date: 20240510
  Transmission Date: 20240716
  Serious: No
  Sender: FDA-Public Use
  Company Number: US-COLLEGIUM PHARMACEUTICAL, INC.-20230500445

PATIENT

DRUGS (2)
  1. XTAMPZA ER [Suspect]
     Active Substance: OXYCODONE
     Indication: Back pain
     Dosage: 18 MILLIGRAM, TID (ONE CAPSULE BY MOUTH THREE TIMES DAILY WITH FOOD)
     Route: 048
     Dates: start: 202212
  2. CARVEDILOL [Concomitant]
     Active Substance: CARVEDILOL
     Indication: Hypertension
     Dosage: 3.2 MILLIGRAM, UNKNOWN
     Route: 065

REACTIONS (3)
  - Therapeutic product effect variable [Not Recovered/Not Resolved]
  - Therapeutic product effect decreased [Unknown]
  - Off label use [Unknown]

NARRATIVE: CASE EVENT DATE: 20221201
